FAERS Safety Report 8021046-0 (Version None)
Quarter: 2011Q4

REPORT INFORMATION
  Report Type: 
  Country: None (occurrence: None)
  Receive Date: 20111229
  Receipt Date: 20111229
  Transmission Date: 20120403
  Serious: No
  Sender: FDA-Public Use
  Company Number: None

PATIENT
  Sex: Male
  Weight: 76.6579 kg

DRUGS (3)
  1. PROTONIX [Suspect]
     Indication: BARRETT'S OESOPHAGUS
  2. PREVACID [Suspect]
     Indication: BARRETT'S OESOPHAGUS
     Dosage: PREVACID TAB 30 MG QD
  3. OMEPRAZOLE [Suspect]
     Indication: BARRETT'S OESOPHAGUS

REACTIONS (3)
  - VOMITING [None]
  - DYSPHAGIA [None]
  - NAUSEA [None]
